FAERS Safety Report 21853209 (Version 1)
Quarter: 2023Q1

REPORT INFORMATION
  Report Type: Spontaneous
  Country: US (occurrence: US)
  Receive Date: 20230112
  Receipt Date: 20230112
  Transmission Date: 20230417
  Serious: Yes (Other)
  Sender: FDA-Public Use
  Company Number: US-CHEPLA-2023000347

PATIENT
  Age: 3 Year
  Sex: Female

DRUGS (10)
  1. GANCICLOVIR [Suspect]
     Active Substance: GANCICLOVIR
     Indication: Cytomegalovirus infection reactivation
     Dosage: Q12 H
  2. VALGANCICLOVIR [Suspect]
     Active Substance: VALGANCICLOVIR
  3. CIDOFOVIR [Suspect]
     Active Substance: CIDOFOVIR
     Indication: Adenovirus infection
     Dosage: WEEKLY
  4. CYCLOPHOSPHAMIDE [Concomitant]
     Active Substance: CYCLOPHOSPHAMIDE
     Indication: Bone marrow conditioning regimen
  5. ETOPOSIDE [Concomitant]
     Active Substance: ETOPOSIDE
     Indication: Bone marrow conditioning regimen
  6. FOSCARNET [Concomitant]
     Active Substance: FOSCARNET
     Dosage: Q12 H, FOR NEARLY 2 WEEKS
  7. FOSCARNET [Concomitant]
     Active Substance: FOSCARNET
     Dosage: Q8 H
  8. VANCOMYCIN [Concomitant]
     Active Substance: VANCOMYCIN
     Indication: Clostridium difficile infection
     Route: 048
  9. LETERMOVIR [Concomitant]
     Active Substance: LETERMOVIR
     Indication: Salvage therapy
     Dosage: DAILY DOSE: 240 MILLIGRAM
  10. HUMAN CYTOMEGALOVIRUS IMMUNE GLOBULIN [Concomitant]
     Active Substance: HUMAN CYTOMEGALOVIRUS IMMUNE GLOBULIN
     Indication: Cytomegalovirus infection reactivation
     Dosage: ONCE WEEKLY

REACTIONS (8)
  - Lymphopenia [Unknown]
  - Drug ineffective [Unknown]
  - Product use issue [Recovered/Resolved]
  - Product use in unapproved indication [Unknown]
  - Pyrexia [Unknown]
  - Diarrhoea [Unknown]
  - Hepatic enzyme increased [Unknown]
  - Clostridium difficile infection [Unknown]
